FAERS Safety Report 10145656 (Version 2)
Quarter: 2014Q2

REPORT INFORMATION
  Report Type: Report from Study
  Country: US (occurrence: US)
  Receive Date: 20140501
  Receipt Date: 20140501
  Transmission Date: 20141212
  Serious: No
  Sender: FDA-Public Use
  Company Number: US-ABBVIE-14P-163-1192024-00

PATIENT
  Age: 59 Year
  Sex: Female
  Weight: 48.58 kg

DRUGS (8)
  1. CREON [Suspect]
     Indication: PANCREATIC INSUFFICIENCY
     Dosage: 3 CAPSULES WITH MEALS, 2 WITH SNACKS
     Route: 048
     Dates: start: 201207, end: 201312
  2. CREON [Suspect]
     Indication: HAEMOCHROMATOSIS
  3. CREON [Suspect]
     Indication: PANCREATIC INSUFFICIENCY
     Dosage: 3 CAPSULES WITH MEALS, 2 WITH SNACKS
     Route: 048
     Dates: start: 201312
  4. OTHER MEDICATIONS [Concomitant]
     Indication: PRODUCT USED FOR UNKNOWN INDICATION
  5. PROPANOLOL [Concomitant]
     Indication: MIGRAINE PROPHYLAXIS
  6. ELAVIL [Concomitant]
     Indication: MIGRAINE PROPHYLAXIS
  7. KLONOPIN [Concomitant]
     Indication: INSOMNIA
  8. FLEXERIL [Concomitant]
     Indication: MUSCLE SPASMS

REACTIONS (8)
  - Extra dose administered [Not Recovered/Not Resolved]
  - Abnormal faeces [Not Recovered/Not Resolved]
  - Drug ineffective [Not Recovered/Not Resolved]
  - Diarrhoea [Not Recovered/Not Resolved]
  - Diarrhoea [Not Recovered/Not Resolved]
  - Steatorrhoea [Recovered/Resolved]
  - Drug ineffective [Not Recovered/Not Resolved]
  - Product quality issue [Not Recovered/Not Resolved]
